FAERS Safety Report 8286732-6 (Version None)
Quarter: 2012Q2

REPORT INFORMATION
  Report Type: 
  Country: None (occurrence: None)
  Receive Date: 20120416
  Receipt Date: 20120410
  Transmission Date: 20120825
  Serious: No
  Sender: FDA-Public Use
  Company Number: US-BAYER-2012-035969

PATIENT
  Age: 36 Year
  Sex: Female
  Weight: 108.84 kg

DRUGS (1)
  1. ULTRAVIST 150 [Suspect]
     Indication: COMPUTERISED TOMOGRAM
     Dosage: 100 UNK, POWER INJECTOR
     Route: 042
     Dates: start: 20120410

REACTIONS (2)
  - PRURITUS GENERALISED [None]
  - CHEST DISCOMFORT [None]
